FAERS Safety Report 5780054-0 (Version None)
Quarter: 2008Q2

REPORT INFORMATION
  Report Type: 
  Country: None (occurrence: None)
  Receive Date: 20080620
  Receipt Date: 20080616
  Transmission Date: 20081010
  Serious: Yes (Other)
  Sender: FDA-Public Use
  Company Number: JP-BAYER-200811240BYL

PATIENT
  Age: 61 Year
  Sex: Male

DRUGS (5)
  1. NEXAVAR [Suspect]
     Indication: RENAL CELL CARCINOMA STAGE IV
     Dosage: UNIT DOSE: 200 MG
     Route: 048
     Dates: start: 20080422, end: 20080612
  2. URINORM [Concomitant]
     Route: 048
     Dates: end: 20080513
  3. ALLOPURINOL [Concomitant]
     Route: 048
     Dates: start: 20080514
  4. CARDENALIN [Concomitant]
     Indication: HYPERTENSION
     Route: 048
     Dates: end: 20080429
  5. CARDENALIN [Concomitant]
     Route: 048
     Dates: start: 20080430

REACTIONS (1)
  - HEPATIC FUNCTION ABNORMAL [None]
